FAERS Safety Report 6144578-9 (Version None)
Quarter: 2009Q2

REPORT INFORMATION
  Report Type: 
  Country: None (occurrence: None)
  Receive Date: 20090406
  Receipt Date: 20090326
  Transmission Date: 20091009
  Serious: Yes (Hospitalization)
  Sender: FDA-Public Use
  Company Number: US-WATSON-2009-02111

PATIENT
  Sex: Female

DRUGS (6)
  1. PROPAFENONE (WATSON LABORATORIES) [Suspect]
     Indication: ATRIAL FIBRILLATION
     Dosage: 225 MG, BID
     Route: 048
     Dates: start: 20090225
  2. PROPAFENONE (WATSON LABORATORIES) [Suspect]
     Dosage: 150 MG, BID
     Route: 048
     Dates: start: 20060101, end: 20090222
  3. PROPAFENONE (WATSON LABORATORIES) [Suspect]
     Dosage: 150 MG, TID
     Route: 048
     Dates: start: 20060101, end: 20060101
  4. THYROID TAB [Concomitant]
     Indication: HYPOTHYROIDISM
     Dosage: UNK
     Route: 065
     Dates: start: 20090201
  5. LANOXIN [Concomitant]
     Indication: ATRIAL FIBRILLATION
     Dosage: UNK
     Route: 065
  6. MAGNESIUM SULFATE [Concomitant]
     Indication: SUPPLEMENTATION THERAPY
     Dosage: UNK
     Route: 065
     Dates: start: 20090201

REACTIONS (7)
  - ABASIA [None]
  - BURNING SENSATION [None]
  - DRUG INEFFECTIVE [None]
  - MUSCULOSKELETAL STIFFNESS [None]
  - MYALGIA [None]
  - NAUSEA [None]
  - PAIN [None]
